FAERS Safety Report 8342466 (Version 3)
Quarter: 2013Q4

REPORT INFORMATION
  Report Type: Report from Study
  Country: US (occurrence: US)
  Receive Date: 20120118
  Receipt Date: 20131125
  Transmission Date: 20140711
  Serious: Yes (Other)
  Sender: FDA-Public Use
  Company Number: US-CELGENEUS-163-50794-12011368

PATIENT
  Age: 71 Year
  Sex: Female

DRUGS (4)
  1. VIDAZA [Suspect]
     Indication: MYELODYSPLASTIC SYNDROME
     Route: 058
     Dates: start: 20111031, end: 20111104
  2. GRANULOCYTE COLONY-STIMULATING FACTOR NOS [Suspect]
     Indication: MYELODYSPLASTIC SYNDROME
     Dosage: 10 MICROGRAM/KILOGRAM
     Route: 058
  3. PLERIXAFOR [Suspect]
     Indication: MYELODYSPLASTIC SYNDROME
     Dosage: 440 MICROGRAM/KILOGRAM
     Route: 058
     Dates: start: 20111205, end: 20111209
  4. ASPIRIN [Concomitant]
     Indication: PRODUCT USED FOR UNKNOWN INDICATION
     Route: 065

REACTIONS (1)
  - Thrombocytosis [Unknown]
